FAERS Safety Report 4282001-X (Version None)
Quarter: 2004Q1

REPORT INFORMATION
  Report Type: 
  Country: None (occurrence: None)
  Receive Date: 20040129
  Receipt Date: 20040116
  Transmission Date: 20041129
  Serious: Yes (Death)
  Sender: FDA-Public Use
  Company Number: 2004S1000203

PATIENT
  Age: 39 Year
  Sex: Female

DRUGS (2)
  1. VERAPAMIL [Suspect]
  2. CEFACLOR [Concomitant]

REACTIONS (3)
  - COMPLETED SUICIDE [None]
  - MEDICATION ERROR [None]
  - OVERDOSE [None]
